FAERS Safety Report 7680621-3 (Version None)
Quarter: 2011Q3

REPORT INFORMATION
  Report Type: 
  Country: None (occurrence: None)
  Receive Date: 20110812
  Receipt Date: 20100802
  Transmission Date: 20111222
  Serious: Yes (Hospitalization, Other)
  Sender: FDA-Public Use
  Company Number: US-ROCHE-719141

PATIENT
  Age: 40 Year
  Sex: Female

DRUGS (2)
  1. RIBAVIRIN [Suspect]
     Route: 065
  2. INTERFERON ALFA [Suspect]
     Dosage: 3 MILLION UNITS DAILY.
     Route: 065

REACTIONS (3)
  - PULMONARY HYPERTENSION [None]
  - ANAEMIA [None]
  - CARDIAC FAILURE [None]
